FAERS Safety Report 18066132 (Version 1)
Quarter: 2020Q3

REPORT INFORMATION
  Report Type: Report from Study
  Country: None (occurrence: CA)
  Receive Date: 20200724
  Receipt Date: 20200724
  Transmission Date: 20201103
  Serious: Yes (Life-Threatening, Hospitalization, Disabling, Other)
  Sender: FDA-Public Use
  Company Number: CA-ABBVIE-20K-028-3465684-00

PATIENT
  Sex: Female
  Weight: 81.72 kg

DRUGS (1)
  1. HUMIRA [Suspect]
     Active Substance: ADALIMUMAB
     Indication: ANKYLOSING SPONDYLITIS
     Route: 058
     Dates: start: 20130301, end: 202002

REACTIONS (18)
  - Acute respiratory failure [Unknown]
  - Cardiogenic shock [Unknown]
  - Coronary artery bypass [Unknown]
  - Pain in jaw [Unknown]
  - Osteitis [Unknown]
  - Ventricle rupture [Unknown]
  - Mediastinitis [Unknown]
  - Mast cell activation syndrome [Recovering/Resolving]
  - Dehiscence [Unknown]
  - Wound closure [Unknown]
  - Supraventricular extrasystoles [Unknown]
  - Chest pain [Unknown]
  - Pain in extremity [Unknown]
  - Cardiac operation [Unknown]
  - Myocardial ischaemia [Unknown]
  - Chest pain [Unknown]
  - Cardiac disorder [Unknown]
  - Post procedural complication [Unknown]

NARRATIVE: CASE EVENT DATE: 2020
